FAERS Safety Report 4868173-4 (Version None)
Quarter: 2005Q4

REPORT INFORMATION
  Report Type: 
  Country: None (occurrence: None)
  Receive Date: 20051229
  Receipt Date: 20051220
  Transmission Date: 20060501
  Serious: Yes (Hospitalization, Disabling)
  Sender: FDA-Public Use
  Company Number: US-JNJFOC-20040202537

PATIENT
  Sex: Male
  Weight: 97.52 kg

DRUGS (6)
  1. RISPERDAL [Suspect]
     Indication: BIPOLAR DISORDER
     Dosage: PATIENT TOOK ONLY 1 DOSE IN TOTAL
     Route: 048
  2. CYLERT [Concomitant]
  3. CYLERT [Concomitant]
  4. KLONOPIN [Concomitant]
     Indication: ANXIETY
  5. PROPECIA [Concomitant]
  6. LEXAPRO [Concomitant]
     Indication: DEPRESSION

REACTIONS (4)
  - ERECTILE DYSFUNCTION [None]
  - PRIAPISM [None]
  - SKIN NECROSIS [None]
  - WHITE BLOOD CELL COUNT INCREASED [None]
